FAERS Safety Report 7390116-2 (Version None)
Quarter: 2011Q2

REPORT INFORMATION
  Report Type: 
  Country: None (occurrence: None)
  Receive Date: 20110401
  Receipt Date: 20110330
  Transmission Date: 20111010
  Serious: Yes (Other)
  Sender: FDA-Public Use
  Company Number: US-AMGEN-USASP2011017201

PATIENT
  Sex: Male

DRUGS (4)
  1. PREDNISONE [Concomitant]
  2. PREDNISONE [Concomitant]
  3. PREDNISONE [Concomitant]
  4. NPLATE [Suspect]
     Indication: IDIOPATHIC THROMBOCYTOPENIC PURPURA
     Dosage: UNK UNK, QWK
     Dates: start: 20110201

REACTIONS (4)
  - PLATELET COUNT ABNORMAL [None]
  - RETINAL DETACHMENT [None]
  - DIZZINESS [None]
  - TINNITUS [None]
